FAERS Safety Report 26132219 (Version 1)
Quarter: 2025Q4

REPORT INFORMATION
  Report Type: Spontaneous
  Country: US (occurrence: None)
  Receive Date: 20251205
  Receipt Date: 20251205
  Transmission Date: 20260117
  Serious: Yes (Hospitalization)
  Sender: FDA-CTU
  Company Number: None

PATIENT
  Sex: Female

DRUGS (2)
  1. GLATOPA [Suspect]
     Active Substance: GLATIRAMER ACETATE
     Indication: Multiple sclerosis
     Dosage: FREQUENCY : DAILY;
     Route: 058
     Dates: start: 20230112
  2. PROLIA [Suspect]
     Active Substance: DENOSUMAB

REACTIONS (1)
  - Multiple sclerosis relapse [None]
